FAERS Safety Report 5430601-3 (Version None)
Quarter: 2007Q3

REPORT INFORMATION
  Report Type: 
  Country: None (occurrence: None)
  Receive Date: 20070830
  Receipt Date: 20070820
  Transmission Date: 20080115
  Serious: Yes (Death, Life-Threatening, Disabling, Other)
  Sender: FDA-Public Use
  Company Number: CA-SOLVAY-00307033316

PATIENT
  Age: 757 Month
  Sex: Female

DRUGS (7)
  1. MARINOL [Suspect]
     Indication: HYPOGEUSIA
     Dosage: DAILY DOSE: 5 MILLIGRAM(S)
     Route: 048
     Dates: start: 20070709, end: 20070716
  2. VENLAFAXINE HCL [Concomitant]
     Indication: DEPRESSION
     Dosage: DAILY DOSE: 225 MILLIGRAM(S)
     Route: 048
     Dates: end: 20070701
  3. ENOXAPARIN SODIUM [Concomitant]
     Indication: THROMBOSIS
     Dosage: DAILY DOSE: 90 MILLIGRAM(S)
     Route: 058
     Dates: end: 20070701
  4. LEVOFLOXACIN [Concomitant]
     Indication: PNEUMONIA
     Dosage: DAILY DOSE: 500 DOSAGE FORM
     Route: 048
     Dates: end: 20070701
  5. METRONIDAZOLE [Concomitant]
     Indication: PNEUMONIA
     Dosage: DAILY DOSE: 1500 MILLIGRAM(S)
     Route: 048
     Dates: end: 20070701
  6. VENTOLIN [Concomitant]
     Indication: ILL-DEFINED DISORDER
     Dosage: DAILY DOSE:  UNKNOWN
     Route: 065
  7. LEVOTHYROXINE SODIUM [Concomitant]
     Indication: HYPOTHYROIDISM
     Dosage: DAILY DOSE: 125 MICROGRAM(S)
     Route: 048
     Dates: end: 20070728

REACTIONS (52)
  - ABDOMINAL DISTENSION [None]
  - ABDOMINAL PAIN UPPER [None]
  - AFFECT LABILITY [None]
  - ANOREXIA [None]
  - ANXIETY [None]
  - ATRIAL FIBRILLATION [None]
  - AUTONOMIC NERVOUS SYSTEM IMBALANCE [None]
  - BRONCHIAL OBSTRUCTION [None]
  - CHROMATURIA [None]
  - CHRONIC OBSTRUCTIVE PULMONARY DISEASE [None]
  - COLLAPSE OF LUNG [None]
  - COMMUNICATION DISORDER [None]
  - CONDITION AGGRAVATED [None]
  - CONFUSIONAL STATE [None]
  - CONSTIPATION [None]
  - CRYING [None]
  - DEHYDRATION [None]
  - DELIRIUM [None]
  - DISEASE PROGRESSION [None]
  - DYSPNOEA [None]
  - EJECTION FRACTION DECREASED [None]
  - EMPHYSEMA [None]
  - FATIGUE [None]
  - GENERAL PHYSICAL HEALTH DETERIORATION [None]
  - HAEMATOCRIT DECREASED [None]
  - HAEMOGLOBIN DECREASED [None]
  - HEART RATE INCREASED [None]
  - HYPERCALCAEMIA [None]
  - INCOHERENT [None]
  - INFECTION [None]
  - KYPHOSIS [None]
  - LIVEDO RETICULARIS [None]
  - LUNG INFECTION [None]
  - LUNG NEOPLASM [None]
  - METASTASES TO CENTRAL NERVOUS SYSTEM [None]
  - MUSCULAR WEAKNESS [None]
  - NEURALGIA [None]
  - OEDEMA PERIPHERAL [None]
  - PALPITATIONS [None]
  - PANCOAST'S TUMOUR [None]
  - PANIC ATTACK [None]
  - PERIPHERAL COLDNESS [None]
  - PLATELET COUNT ABNORMAL [None]
  - PNEUMONIA [None]
  - PULMONARY ARTERY THROMBOSIS [None]
  - PULMONARY OEDEMA [None]
  - PULMONARY VENOUS THROMBOSIS [None]
  - RED BLOOD CELL SCAN [None]
  - RESPIRATORY FAILURE [None]
  - SOMNOLENCE [None]
  - SUBCLAVIAN ARTERY STENOSIS [None]
  - TUMOUR INVASION [None]
